FAERS Safety Report 9363996 (Version 6)
Quarter: 2013Q3

REPORT INFORMATION
  Report Type: Spontaneous
  Country: US (occurrence: US)
  Receive Date: 20130624
  Receipt Date: 20130821
  Transmission Date: 20140515
  Serious: No
  Sender: FDA-Public Use
  Company Number: US-VERTEX PHARMACEUTICALS INC-2013-007316

PATIENT
  Age: 55 Year
  Sex: Male
  Weight: 91 kg

DRUGS (9)
  1. INCIVEK [Suspect]
     Indication: HEPATITIS C
     Dosage: 750 MG, TID
     Route: 048
     Dates: start: 20130531
  2. RIBAVIRIN [Suspect]
     Indication: HEPATITIS C
     Dosage: 600 MG AM/ 400 MG PM, QD
     Route: 048
     Dates: start: 20130531
  3. PEGASYS [Suspect]
     Indication: HEPATITIS C
     Dosage: 180 ?G, QW
     Route: 058
     Dates: start: 20130531
  4. ALEVE [Concomitant]
  5. ASA [Concomitant]
     Indication: HYPERTENSION
     Dosage: UNK, QD
     Route: 048
  6. ASA [Concomitant]
     Indication: ANTICOAGULANT THERAPY
  7. LISINOPRIL HCTZ [Concomitant]
     Indication: HYPERTENSION
     Dosage: UNK, QD
     Route: 048
  8. CORTAID [Concomitant]
     Indication: PRURITUS
     Dosage: UNK, PRN
     Route: 061
  9. CORTAID [Concomitant]
     Indication: RASH

REACTIONS (15)
  - Glossodynia [Not Recovered/Not Resolved]
  - Oral mucosal blistering [Recovered/Resolved]
  - Oral mucosal erythema [Not Recovered/Not Resolved]
  - Chills [Recovered/Resolved]
  - Constipation [Not Recovered/Not Resolved]
  - Oral pain [Recovered/Resolved]
  - Decreased appetite [Not Recovered/Not Resolved]
  - Anal haemorrhage [Recovered/Resolved]
  - Haematochezia [Not Recovered/Not Resolved]
  - Diarrhoea [Not Recovered/Not Resolved]
  - Rectal haemorrhage [Not Recovered/Not Resolved]
  - Anorectal discomfort [Not Recovered/Not Resolved]
  - Pruritus [Not Recovered/Not Resolved]
  - Rash [Not Recovered/Not Resolved]
  - Haemorrhoids [Not Recovered/Not Resolved]
